FAERS Safety Report 4692352-2 (Version None)
Quarter: 2005Q2

REPORT INFORMATION
  Report Type: 
  Country: None (occurrence: None)
  Receive Date: 20050616
  Receipt Date: 20050604
  Transmission Date: 20051028
  Serious: Yes (Hospitalization)
  Sender: FDA-Public Use
  Company Number: US-GLAXOSMITHKLINE-A0561291A

PATIENT
  Age: 61 Year
  Sex: Female

DRUGS (9)
  1. SENSODYNE-F [Suspect]
     Indication: DENTAL CLEANING
     Dates: start: 20030101
  2. COUMADIN [Suspect]
  3. ATENOLOL [Concomitant]
  4. ALTACE [Concomitant]
  5. LIPITOR [Concomitant]
  6. NORVASC [Concomitant]
  7. ISOSORBIDE [Concomitant]
  8. PAXIL [Concomitant]
  9. HYDROCHLOROTHIAZIDE [Concomitant]

REACTIONS (3)
  - HAEMORRHAGE [None]
  - OVARIAN CANCER [None]
  - POST PROCEDURAL HAEMATOMA [None]
